FAERS Safety Report 10500100 (Version 1)
Quarter: 2014Q4

REPORT INFORMATION
  Report Type: Spontaneous
  Country: US (occurrence: US)
  Receive Date: 20141006
  Receipt Date: 20141006
  Transmission Date: 20150528
  Serious: No
  Sender: FDA-Public Use
  Company Number: US-AMGEN INC.-USASP2014052397

PATIENT
  Sex: Female

DRUGS (1)
  1. PROLIA [Suspect]
     Active Substance: DENOSUMAB
     Indication: PRODUCT USED FOR UNKNOWN INDICATION
     Dosage: UNK
     Route: 065

REACTIONS (11)
  - Neck pain [Unknown]
  - Back pain [Unknown]
  - Pain in extremity [Unknown]
  - Conjunctivitis [Unknown]
  - Skin haemorrhage [Unknown]
  - Haemorrhoids [Unknown]
  - Eye irritation [Unknown]
  - Pruritus [Unknown]
  - Ear infection [Unknown]
  - Gastrointestinal disorder [Unknown]
  - Arthralgia [Unknown]
